FAERS Safety Report 18567188 (Version 1)
Quarter: 2020Q4

REPORT INFORMATION
  Report Type: Spontaneous
  Country: US (occurrence: US)
  Receive Date: 20201201
  Receipt Date: 20201201
  Transmission Date: 20210114
  Serious: No
  Sender: FDA-Public Use
  Company Number: US-ELI_LILLY_AND_COMPANY-US202011012136

PATIENT
  Age: 59 Year
  Sex: Male

DRUGS (6)
  1. BASAGLAR [Suspect]
     Active Substance: INSULIN GLARGINE
     Indication: DIABETES MELLITUS
     Dosage: 3-5 UNITS, EVERY NIGHT
     Route: 058
     Dates: start: 202005
  2. INSULIN RAPID [Concomitant]
     Active Substance: INSULIN NOS
     Indication: PRODUCT USED FOR UNKNOWN INDICATION
     Dosage: UNK UNK, TID
  3. BASAGLAR [Suspect]
     Active Substance: INSULIN GLARGINE
     Dosage: 3-5 UNITS, EVERY NIGHT
     Route: 058
  4. OZEMPIC [Concomitant]
     Active Substance: SEMAGLUTIDE
     Indication: PRODUCT USED FOR UNKNOWN INDICATION
     Dosage: UNK UNK, WEEKLY (1/W)
  5. BASAGLAR [Suspect]
     Active Substance: INSULIN GLARGINE
     Dosage: 3-5 UNITS, EVERY NIGHT
     Route: 058
  6. BASAGLAR [Suspect]
     Active Substance: INSULIN GLARGINE
     Indication: DIABETES MELLITUS
     Dosage: 3-5 UNITS, EVERY NIGHT
     Route: 058
     Dates: start: 202005

REACTIONS (2)
  - Drug ineffective [Not Recovered/Not Resolved]
  - Diabetes mellitus inadequate control [Not Recovered/Not Resolved]

NARRATIVE: CASE EVENT DATE: 202006
